FAERS Safety Report 9736781 (Version 1)
Quarter: 2013Q4

REPORT INFORMATION
  Report Type: Spontaneous
  Country: US (occurrence: US)
  Receive Date: 20131206
  Receipt Date: 20131206
  Transmission Date: 20140711
  Serious: No
  Sender: FDA-Public Use
  Company Number: US-BIOGENIDEC-2013BI093406

PATIENT
  Age: 51 Year
  Sex: Female

DRUGS (11)
  1. TECFIDERA [Suspect]
     Indication: MULTIPLE SCLEROSIS
     Route: 048
     Dates: start: 20130916
  2. TECFIDERA [Suspect]
     Indication: MULTIPLE SCLEROSIS
     Route: 048
     Dates: start: 20130926
  3. PAXIL [Concomitant]
  4. RAMIPRIL [Concomitant]
  5. PRAVASTATIN [Concomitant]
  6. ZETIA [Concomitant]
  7. GABAPENTIN [Concomitant]
  8. METFORMIN [Concomitant]
  9. VITAMIN D [Concomitant]
  10. CALCIUM [Concomitant]
  11. VICTOZA [Concomitant]

REACTIONS (4)
  - Hyperhidrosis [Unknown]
  - Pyrexia [Unknown]
  - Nausea [Unknown]
  - Flushing [Recovered/Resolved]
